FAERS Safety Report 10570178 (Version 1)
Quarter: 2014Q4

REPORT INFORMATION
  Report Type: Spontaneous
  Country: US (occurrence: None)
  Receive Date: 20141106
  Receipt Date: 20141106
  Transmission Date: 20150529
  Serious: Yes (Other)
  Sender: FDA-Public Use
  Company Number: None

PATIENT
  Age: 60 Year
  Sex: Female

DRUGS (1)
  1. ESCITALOPRAM [Suspect]
     Active Substance: ESCITALOPRAM OXALATE
     Indication: DEPRESSION
     Dosage: 1 PILL, ONCE DAILY, TAKEN BY MOUTH
     Route: 048

REACTIONS (9)
  - Social problem [None]
  - Depression [None]
  - Mental impairment [None]
  - Somnolence [None]
  - Hypophagia [None]
  - Impaired work ability [None]
  - Suicidal ideation [None]
  - Depressed mood [None]
  - Product substitution issue [None]

NARRATIVE: CASE EVENT DATE: 20141105
